FAERS Safety Report 5012560-0 (Version None)
Quarter: 2006Q2

REPORT INFORMATION
  Report Type: 
  Country: None (occurrence: None)
  Receive Date: 20060414
  Receipt Date: 20060111
  Transmission Date: 20061013
  Serious: No
  Sender: FDA-Public Use
  Company Number: 2006SP000199

PATIENT
  Sex: Female

DRUGS (4)
  1. LUNESTA [Suspect]
     Dosage: HS;ORAL
     Route: 048
     Dates: start: 20051101
  2. NEURONTIN [Concomitant]
  3. AMITRIPTYLINE HCL [Concomitant]
  4. PRAVACHOL [Concomitant]

REACTIONS (2)
  - DYSGEUSIA [None]
  - INSOMNIA [None]
